FAERS Safety Report 8525996-8 (Version None)
Quarter: 2012Q3

REPORT INFORMATION
  Report Type: 
  Country: None (occurrence: None)
  Receive Date: 20120720
  Receipt Date: 20120711
  Transmission Date: 20120928
  Serious: Yes (Other)
  Sender: FDA-Public Use
  Company Number: CHPA2012TR015196

PATIENT
  Age: 36 Year
  Sex: Female

DRUGS (1)
  1. OTRIVIN [Suspect]
     Indication: INFLUENZA
     Dosage: 20-21 YEARS, 1 BOTTLE PER 5-7 DAYS ON AVERAGE
     Route: 045

REACTIONS (6)
  - PAROSMIA [None]
  - NASAL DRYNESS [None]
  - CLAUSTROPHOBIA [None]
  - HYPERSENSITIVITY [None]
  - PANIC ATTACK [None]
  - HEADACHE [None]
